FAERS Safety Report 15637974 (Version 1)
Quarter: 2018Q4

REPORT INFORMATION
  Report Type: Spontaneous
  Country: US (occurrence: US)
  Receive Date: 20181120
  Receipt Date: 20181120
  Transmission Date: 20190205
  Serious: No
  Sender: FDA-Public Use
  Company Number: US-JNJFOC-20180718125

PATIENT
  Sex: Male
  Weight: 61 kg

DRUGS (4)
  1. IMBRUVICA [Suspect]
     Active Substance: IBRUTINIB
     Indication: B-CELL SMALL LYMPHOCYTIC LYMPHOMA
     Route: 048
     Dates: start: 2018
  2. IMBRUVICA [Suspect]
     Active Substance: IBRUTINIB
     Indication: PANCYTOPENIA
     Route: 048
     Dates: start: 2018
  3. IMBRUVICA [Suspect]
     Active Substance: IBRUTINIB
     Indication: PANCYTOPENIA
     Route: 048
     Dates: start: 2018
  4. IMBRUVICA [Suspect]
     Active Substance: IBRUTINIB
     Indication: B-CELL SMALL LYMPHOCYTIC LYMPHOMA
     Route: 048
     Dates: start: 2018

REACTIONS (3)
  - Incorrect dose administered [Unknown]
  - Off label use [Unknown]
  - Product use in unapproved indication [Unknown]

NARRATIVE: CASE EVENT DATE: 2018
